FAERS Safety Report 18764524 (Version 3)
Quarter: 2021Q1

REPORT INFORMATION
  Report Type: Spontaneous
  Country: IE (occurrence: IE)
  Receive Date: 20210120
  Receipt Date: 20210211
  Transmission Date: 20210419
  Serious: Yes (Other)
  Sender: FDA-Public Use
  Company Number: NVSC2020IE167590

PATIENT
  Age: 59 Year
  Sex: Male

DRUGS (26)
  1. DEXAMETHASONE. [Suspect]
     Active Substance: DEXAMETHASONE
     Dosage: 20 MG
     Route: 065
  2. KYPROLIS [Suspect]
     Active Substance: CARFILZOMIB
     Dosage: 108 MG, QW (UNIT=VIAL ? LYOPHILIZED)
     Route: 042
     Dates: start: 20200707
  3. KYPROLIS [Suspect]
     Active Substance: CARFILZOMIB
     Dosage: 108 MG, Q2W (UNIT=VIAL ? LYOPHILIZED)
     Route: 042
  4. PARACETAMOL [Concomitant]
     Active Substance: ACETAMINOPHEN
     Indication: PRODUCT USED FOR UNKNOWN INDICATION
     Dosage: 1000 MG, PRN
     Route: 065
  5. KYPROLIS [Suspect]
     Active Substance: CARFILZOMIB
     Dosage: 108 MG, Q2W (UNIT=VIAL ? LYOPHILIZED)
     Route: 042
  6. KYPROLIS [Suspect]
     Active Substance: CARFILZOMIB
     Dosage: 108 MG, QW (UNIT=VIAL ? LYOPHILIZED)
     Route: 042
     Dates: start: 20200616
  7. IDEOS [Concomitant]
     Active Substance: CALCIUM CARBONATE\CHOLECALCIFEROL
     Indication: PRODUCT USED FOR UNKNOWN INDICATION
     Dosage: 2 DF, QD (1 APPLICATION, BID)
     Route: 065
  8. KYPROLIS [Suspect]
     Active Substance: CARFILZOMIB
     Indication: PLASMA CELL MYELOMA
     Dosage: 108 MG, Q2W (UNIT=VIAL ? LYOPHILIZED)
     Route: 042
  9. KYPROLIS [Suspect]
     Active Substance: CARFILZOMIB
     Dosage: 108 MG, Q2W (UNIT=VIAL ? LYOPHILIZED )
     Route: 042
  10. KYPROLIS [Suspect]
     Active Substance: CARFILZOMIB
     Dosage: 108 MG, Q2W (UNIT=VIAL ? LYOPHILIZED)
     Route: 042
  11. VALACICLOVIR [Concomitant]
     Active Substance: VALACYCLOVIR HYDROCHLORIDE
     Indication: PRODUCT USED FOR UNKNOWN INDICATION
     Dosage: 500 MG, QD
     Route: 065
  12. KYPROLIS [Suspect]
     Active Substance: CARFILZOMIB
     Dosage: 108 MG, Q2W  (UNIT=VIAL ? LYOPHILIZED)
     Route: 042
  13. KYPROLIS [Suspect]
     Active Substance: CARFILZOMIB
     Dosage: 108 MG, Q2W (UNIT=VIAL ? LYOPHILIZED)
     Route: 042
  14. KYPROLIS [Suspect]
     Active Substance: CARFILZOMIB
     Dosage: 56 MG/M2, QW (DAY 1, 8 AND 15) (UNIT=NOT AVAILABLE)
     Route: 042
     Dates: start: 20200320
  15. POMALIDOMIDE [Suspect]
     Active Substance: POMALIDOMIDE
     Indication: PLASMA CELL MYELOMA
     Dosage: 4 MG (4 MILLIGRAM (DAYS 1?21)
     Route: 065
     Dates: start: 20200320
  16. ESOMEPRAZOLE. [Concomitant]
     Active Substance: ESOMEPRAZOLE MAGNESIUM
     Indication: PRODUCT USED FOR UNKNOWN INDICATION
     Dosage: 40 MG, QD
     Route: 065
  17. ASPIRIN. [Concomitant]
     Active Substance: ASPIRIN
     Indication: PRODUCT USED FOR UNKNOWN INDICATION
     Dosage: 75 MG, QD
     Route: 065
  18. DEXAMETHASONE. [Suspect]
     Active Substance: DEXAMETHASONE
     Indication: PLASMA CELL MYELOMA
     Dosage: 40 MG, QW (40 MILLIGRAM, QWK)
     Route: 065
     Dates: start: 20200320
  19. KYPROLIS [Suspect]
     Active Substance: CARFILZOMIB
     Dosage: 108 MG, Q2W (UNIT=VIAL ? LYOPHILIZED)
     Route: 042
     Dates: start: 20200512
  20. KYPROLIS [Suspect]
     Active Substance: CARFILZOMIB
     Dosage: 108 MG, Q2W (UNIT=VIAL ? LYOPHILIZED)
     Route: 042
  21. KYPROLIS [Suspect]
     Active Substance: CARFILZOMIB
     Dosage: 108 MG, Q2W (UNIT=VIAL ? LYOPHILIZED)
     Route: 042
  22. SEPTRIN [Concomitant]
     Active Substance: SULFAMETHOXAZOLE\TRIMETHOPRIM
     Indication: PRODUCT USED FOR UNKNOWN INDICATION
     Dosage: 160 MG, QD
     Route: 065
  23. TARGIN [Concomitant]
     Active Substance: NALOXONE HYDROCHLORIDE\OXYCODONE HYDROCHLORIDE
     Indication: PRODUCT USED FOR UNKNOWN INDICATION
     Dosage: 5 MG, PRN
     Route: 065
  24. KYPROLIS [Suspect]
     Active Substance: CARFILZOMIB
     Dosage: 108 MG, QW (UNIT=VIAL ? LYOPHILIZED)
     Route: 042
     Dates: start: 20200609
  25. KYPROLIS [Suspect]
     Active Substance: CARFILZOMIB
     Dosage: 108 MG, Q2W (UNIT=VIAL ? LYOPHILIZED)
     Route: 042
  26. KYPROLIS [Suspect]
     Active Substance: CARFILZOMIB
     Dosage: 108 MG, Q2W (UNIT=VIAL ? LYOPHILIZED)
     Route: 042

REACTIONS (8)
  - Muscle spasms [Recovering/Resolving]
  - Blood pressure increased [Unknown]
  - Hypoaesthesia [Not Recovered/Not Resolved]
  - Off label use [Unknown]
  - Muscle atrophy [Not Recovered/Not Resolved]
  - Depressed mood [Not Recovered/Not Resolved]
  - Haemoglobin decreased [Unknown]
  - Cataract [Not Recovered/Not Resolved]

NARRATIVE: CASE EVENT DATE: 2020
